FAERS Safety Report 8543636-9 (Version None)
Quarter: 2012Q3

REPORT INFORMATION
  Report Type: 
  Country: None (occurrence: None)
  Receive Date: 20120727
  Receipt Date: 20120718
  Transmission Date: 20120928
  Serious: Yes (Other)
  Sender: FDA-Public Use
  Company Number: GB-JNJFOC-20120709201

PATIENT
  Age: 30 Year
  Sex: Male
  Weight: 133.35 kg

DRUGS (2)
  1. ACETAMINOPHEN AND CODEINE PHOSPHATE [Suspect]
     Indication: BACK PAIN
     Route: 048
     Dates: start: 20120707, end: 20120707
  2. INSULIN [Concomitant]

REACTIONS (3)
  - NAUSEA [None]
  - THROAT IRRITATION [None]
  - DIZZINESS POSTURAL [None]
